FAERS Safety Report 7968322-5 (Version None)
Quarter: 2011Q4

REPORT INFORMATION
  Report Type: 
  Country: None (occurrence: None)
  Receive Date: 20111209
  Receipt Date: 20111207
  Transmission Date: 20120403
  Serious: Yes (Other)
  Sender: FDA-Public Use
  Company Number: US-PFIZER INC-2011299245

PATIENT
  Sex: Female
  Weight: 99.8 kg

DRUGS (7)
  1. LYRICA [Suspect]
     Dosage: 75 MG, 3X/DAY
     Route: 048
  2. CORGARD [Concomitant]
     Indication: HYPERTENSION
     Dosage: 40 MG, UNK
  3. LYRICA [Suspect]
     Indication: FIBROMYALGIA
     Dosage: 75 MG, 1X/DAY
     Route: 048
  4. LOPID [Concomitant]
     Indication: BLOOD CHOLESTEROL INCREASED
     Dosage: UNK
  5. MICARDIS [Concomitant]
     Dosage: UNK
  6. CLONIDINE [Concomitant]
     Dosage: 3 MG, UNK
  7. JANUMET [Concomitant]
     Dosage: 50 MG, UNK

REACTIONS (3)
  - HYPERTENSION [None]
  - HEADACHE [None]
  - POOR QUALITY DRUG ADMINISTERED [None]
